FAERS Safety Report 9808148 (Version 6)
Quarter: 2014Q2

REPORT INFORMATION
  Report Type: Report from Study
  Country: IL (occurrence: IL)
  Receive Date: 20140110
  Receipt Date: 20140515
  Transmission Date: 20141212
  Serious: Yes (Death, Hospitalization, Disabling, Other)
  Sender: FDA-Public Use
  Company Number: IL-TEVA-443167USA

PATIENT
  Age: 73 Year
  Sex: Female
  Weight: 83 kg

DRUGS (16)
  1. BENDAMUSTINE [Suspect]
     Indication: CHRONIC LYMPHOCYTIC LEUKAEMIA
     Route: 042
     Dates: start: 20131021, end: 20131028
  2. BENDAMUSTINE [Suspect]
     Indication: LYMPHOCYTIC LEUKAEMIA
  3. RITUXIMAB [Suspect]
     Indication: CHRONIC LYMPHOCYTIC LEUKAEMIA
     Dosage: CYCLE 1 DAY 1
     Route: 042
     Dates: start: 20131020
  4. RITUXIMAB [Suspect]
     Indication: LYMPHOCYTIC LEUKAEMIA
     Dosage: CYCLE 1 DAY 2
     Route: 042
     Dates: start: 20131021
  5. RITUXIMAB [Suspect]
     Dosage: CYCLE 2 DAY 1
     Route: 042
     Dates: start: 20131117
  6. IBRUTINIB/PLACEBO [Suspect]
     Indication: CHRONIC LYMPHOCYTIC LEUKAEMIA
     Dosage: 420 MILLIGRAM DAILY; CYCLE 1 (8 DAYS)
     Route: 048
     Dates: start: 20131021, end: 20131028
  7. IBRUTINIB/PLACEBO [Suspect]
     Dosage: 420 MILLIGRAM DAILY; CYCLE 2 (6 DAYS)
     Route: 048
     Dates: start: 20131117, end: 20131122
  8. ASPIRIN [Concomitant]
     Indication: HYPERTENSION
     Dosage: 100 MILLIGRAM DAILY;
     Route: 048
  9. OCSAAR [Concomitant]
     Indication: HYPERTENSION
     Dosage: 60 MILLIGRAM DAILY;
     Route: 048
  10. FOSALAN [Concomitant]
     Indication: OSTEOPOROSIS
     Dosage: 10 MILLIGRAM DAILY;
     Route: 048
  11. NOVONORM [Concomitant]
     Indication: DIABETES MELLITUS
     Dosage: 6 MILLIGRAM DAILY;
     Route: 048
  12. AMLODIPINE MALEATE [Concomitant]
     Indication: HYPERTENSION
     Dosage: 5 MILLIGRAM DAILY;
     Route: 048
  13. METFORMIN [Concomitant]
     Indication: DIABETES MELLITUS
     Route: 048
  14. VILDAGLIPTIN [Concomitant]
     Indication: DIABETES MELLITUS
  15. TELFAST [Concomitant]
     Indication: SEASONAL ALLERGY
     Dosage: 180 MILLIGRAM DAILY;
     Route: 048
  16. FERRIFOL [Concomitant]
     Indication: IRON DEFICIENCY

REACTIONS (2)
  - Progressive multifocal leukoencephalopathy [Fatal]
  - Fall [Recovered/Resolved]
